FAERS Safety Report 8143328-4 (Version None)
Quarter: 2012Q1

REPORT INFORMATION
  Report Type: 
  Country: None (occurrence: None)
  Receive Date: 20120217
  Receipt Date: 20120210
  Transmission Date: 20120608
  Serious: Yes (Death)
  Sender: FDA-Public Use
  Company Number: US-PFIZER INC-2012037054

PATIENT
  Sex: Female

DRUGS (2)
  1. REVATIO [Suspect]
     Dosage: 20 MG, 3X/DAY
     Dates: start: 20090309, end: 20120130
  2. REVATIO [Suspect]
     Indication: PULMONARY HYPERTENSION
     Dosage: 20 MG, 2X/DAY
     Dates: start: 20090303

REACTIONS (1)
  - RENAL FAILURE [None]
